FAERS Safety Report 10017698 (Version 1)
Quarter: 2014Q1

REPORT INFORMATION
  Report Type: Spontaneous
  Country: US (occurrence: US)
  Receive Date: 20140318
  Receipt Date: 20140318
  Transmission Date: 20141002
  Serious: Yes (Death)
  Sender: FDA-Public Use
  Company Number: US-BRISTOL-MYERS SQUIBB COMPANY-17431289

PATIENT
  Age: 89 Year
  Sex: Male
  Weight: 76.19 kg

DRUGS (10)
  1. ERBITUX [Suspect]
     Indication: HEAD AND NECK CANCER
     Dosage: C1200251; EX DATE: OCT2015 200MG VIAL?IMF346; EX DATE: MAY2015 100 MG VIAL
  2. MAGNESIUM SULFATE [Concomitant]
  3. BENADRYL [Concomitant]
     Route: 042
  4. DURAGESIC PATCH [Concomitant]
  5. COLACE [Concomitant]
     Dosage: BID
  6. LACTULOSE [Concomitant]
     Dosage: PRN
  7. LEVOTHYROXINE [Concomitant]
  8. MIRALAX [Concomitant]
  9. VITAMIN B12 [Concomitant]
  10. OXYCODONE [Concomitant]
     Dosage: 5 MG/5ML

REACTIONS (3)
  - Loss of consciousness [Fatal]
  - Hypotension [Fatal]
  - Dyspnoea [Fatal]
